FAERS Safety Report 6436940-1 (Version None)
Quarter: 2009Q4

REPORT INFORMATION
  Report Type: 
  Country: None (occurrence: None)
  Receive Date: 20091109
  Receipt Date: 20091102
  Transmission Date: 20100525
  Serious: Yes (Hospitalization)
  Sender: FDA-Public Use
  Company Number: 09GB004771

PATIENT
  Age: 22 Year
  Sex: Male

DRUGS (2)
  1. ACETAMINOPHEN [Suspect]
     Indication: OVERDOSE
     Dosage: ORAL
     Route: 048
  2. COCAINE (COCAINE HYDROCHLORIDIE) [Suspect]
     Indication: DRUG ABUSE

REACTIONS (13)
  - ABDOMINAL DISTENSION [None]
  - ACUTE HEPATIC FAILURE [None]
  - CONTINUOUS HAEMODIAFILTRATION [None]
  - ENCEPHALOPATHY [None]
  - FAT NECROSIS [None]
  - HEPATIC STEATOSIS [None]
  - LIVER TRANSPLANT [None]
  - LIVER TRANSPLANT REJECTION [None]
  - OVERDOSE [None]
  - PANCREATIC NECROSIS [None]
  - PANCREATITIS ACUTE [None]
  - SEPSIS [None]
  - TACHYCARDIA [None]
